FAERS Safety Report 15680375 (Version 1)
Quarter: 2018Q4

REPORT INFORMATION
  Report Type: Spontaneous
  Country: US (occurrence: US)
  Receive Date: 20181120
  Receipt Date: 20181120
  Transmission Date: 20190205
  Serious: No
  Sender: FDA-Public Use
  Company Number: None

PATIENT
  Age: 65 Year
  Sex: Female
  Weight: 85.5 kg

DRUGS (5)
  1. TYLENOL [Concomitant]
     Active Substance: ACETAMINOPHEN
  2. LATUDA [Suspect]
     Active Substance: LURASIDONE HYDROCHLORIDE
     Indication: BIPOLAR DISORDER
     Dosage: ?          QUANTITY:1 DF DOSAGE FORM;?
     Route: 048
  3. MULTIVITAMIN [Concomitant]
     Active Substance: VITAMINS
  4. LATUDA [Suspect]
     Active Substance: LURASIDONE HYDROCHLORIDE
     Indication: SEASONAL AFFECTIVE DISORDER
     Dosage: ?          QUANTITY:1 DF DOSAGE FORM;?
     Route: 048
  5. SYNTHROID [Concomitant]
     Active Substance: LEVOTHYROXINE SODIUM

REACTIONS (2)
  - Nausea [None]
  - Dizziness [None]

NARRATIVE: CASE EVENT DATE: 20171101
